FAERS Safety Report 10752280 (Version 1)
Quarter: 2015Q1

REPORT INFORMATION
  Report Type: Spontaneous
  Country: US (occurrence: US)
  Receive Date: 20150130
  Receipt Date: 20150130
  Transmission Date: 20150721
  Serious: Yes (Hospitalization)
  Sender: FDA-Public Use
  Company Number: US-INCYTE CORPORATION-2015IN000249

PATIENT

DRUGS (3)
  1. JAKAFI [Suspect]
     Active Substance: RUXOLITINIB
     Indication: POLYCYTHAEMIA VERA
  2. ALLOPURINOL. [Concomitant]
     Active Substance: ALLOPURINOL
  3. JAKAFI [Suspect]
     Active Substance: RUXOLITINIB
     Indication: MYELOFIBROSIS
     Dosage: 15 MG, BID
     Route: 048
     Dates: start: 2013

REACTIONS (2)
  - Insomnia [Unknown]
  - Nephrolithiasis [Unknown]

NARRATIVE: CASE EVENT DATE: 20141230
